FAERS Safety Report 7026169-0 (Version None)
Quarter: 2010Q4

REPORT INFORMATION
  Report Type: 
  Country: None (occurrence: None)
  Receive Date: 20101004
  Receipt Date: 20100924
  Transmission Date: 20110411
  Serious: Yes (Hospitalization)
  Sender: FDA-Public Use
  Company Number: 150774

PATIENT
  Age: 38 Year
  Sex: Female
  Weight: 54 kg

DRUGS (4)
  1. AVONEX [Suspect]
     Indication: MULTIPLE SCLEROSIS
     Route: 030
     Dates: start: 20000101, end: 20030101
  2. AVONEX [Suspect]
     Route: 030
     Dates: start: 20030101
  3. EFFEXOR [Concomitant]
     Indication: DEPRESSION
  4. ZOLOFT [Concomitant]
     Indication: DEPRESSION
     Dates: start: 20010101, end: 20010101

REACTIONS (16)
  - ASTHENIA [None]
  - CARPAL TUNNEL SYNDROME [None]
  - CONTUSION [None]
  - CONVULSION [None]
  - DEPRESSION [None]
  - DIARRHOEA [None]
  - DIZZINESS [None]
  - GRAND MAL CONVULSION [None]
  - INFLUENZA LIKE ILLNESS [None]
  - INJECTION SITE PAIN [None]
  - LIMB INJURY [None]
  - PAIN [None]
  - PAIN IN EXTREMITY [None]
  - RHEUMATOID ARTHRITIS [None]
  - STRESS [None]
  - WEIGHT INCREASED [None]
